FAERS Safety Report 8321962-6 (Version None)
Quarter: 2012Q2

REPORT INFORMATION
  Report Type: 
  Country: None (occurrence: None)
  Receive Date: 20120426
  Receipt Date: 20120417
  Transmission Date: 20120825
  Serious: Yes (Hospitalization)
  Sender: FDA-Public Use
  Company Number: 1262254

PATIENT
  Age: 75 Year
  Sex: Female
  Weight: 72 kg

DRUGS (13)
  1. PACLITAXEL [Suspect]
     Indication: CHEMOTHERAPY
     Dosage: 1429 MG (155 MG, 1 IN 1 WEEKS) INTRAVENOUS (NOT OTHERWISE SPECIFIED)
     Route: 042
     Dates: start: 20120203, end: 20120210
  2. (OROCAL /00751519/) [Concomitant]
  3. TRAMADOL HCL [Concomitant]
  4. MORPHINE SULFATE [Concomitant]
  5. VITAMIN D [Concomitant]
  6. PRIMPERAN TAB [Concomitant]
  7. MORPHINE SULFATE [Concomitant]
  8. CARBOPLATIN [Concomitant]
  9. ALDACTONE [Concomitant]
  10. XANAX [Concomitant]
  11. ACETAMINOPHEN [Concomitant]
  12. METHYLPREDNISOLONE [Concomitant]
  13. ZOMETA [Concomitant]

REACTIONS (4)
  - PSEUDOMEMBRANOUS COLITIS [None]
  - DIARRHOEA HAEMORRHAGIC [None]
  - COLITIS [None]
  - FOOD ALLERGY [None]
